FAERS Safety Report 7368658-5 (Version None)
Quarter: 2011Q1

REPORT INFORMATION
  Report Type: 
  Country: None (occurrence: None)
  Receive Date: 20110323
  Receipt Date: 20110316
  Transmission Date: 20110831
  Serious: Yes (Other)
  Sender: FDA-Public Use
  Company Number: US-BRISTOL-MYERS SQUIBB COMPANY-15614118

PATIENT
  Age: 56 Year
  Sex: Male
  Weight: 95 kg

DRUGS (6)
  1. ALIMTA [Suspect]
     Indication: NON-SMALL CELL LUNG CANCER
     Dosage: LAST DOSE ON 16FEB2011.
     Route: 042
     Dates: start: 20110126
  2. CARBOPLATIN [Suspect]
     Indication: NON-SMALL CELL LUNG CANCER
     Dosage: LAST DOSE ON 16 FEB 2011.1 DF=6 AUC
     Route: 042
     Dates: start: 20110126
  3. FOLIC ACID [Concomitant]
     Dates: start: 20110119
  4. VITAMIN B-12 [Concomitant]
     Dates: start: 20110129
  5. DEXAMETHASONE [Concomitant]
     Dates: start: 20110125
  6. ZAROXOLYN [Concomitant]
     Dates: start: 20110302

REACTIONS (3)
  - DYSPNOEA [None]
  - OEDEMA PERIPHERAL [None]
  - PERFORMANCE STATUS DECREASED [None]
